FAERS Safety Report 19384511 (Version 1)
Quarter: 2021Q2

REPORT INFORMATION
  Report Type: Spontaneous
  Country: US (occurrence: US)
  Receive Date: 20210608
  Receipt Date: 20210608
  Transmission Date: 20210717
  Serious: Yes (Hospitalization, Other)
  Sender: FDA-Public Use
  Company Number: US-ROCHE-2842640

PATIENT
  Sex: Male
  Weight: 119 kg

DRUGS (11)
  1. DUONEB [Concomitant]
     Active Substance: ALBUTEROL SULFATE\IPRATROPIUM BROMIDE
  2. VITAMIN D3 [Concomitant]
     Active Substance: CHOLECALCIFEROL
  3. XOLAIR [Suspect]
     Active Substance: OMALIZUMAB
     Indication: ASTHMA
     Dosage: 150MG/ML SYRINGE
     Route: 058
  4. XOLAIR [Suspect]
     Active Substance: OMALIZUMAB
     Indication: GASTROOESOPHAGEAL REFLUX DISEASE
  5. XOLAIR [Suspect]
     Active Substance: OMALIZUMAB
     Indication: BACK PAIN
  6. ALBUTEROL. [Concomitant]
     Active Substance: ALBUTEROL
  7. XOLAIR [Suspect]
     Active Substance: OMALIZUMAB
     Indication: OBESITY
  8. ADVAIR HFA [Concomitant]
     Active Substance: FLUTICASONE PROPIONATE\SALMETEROL XINAFOATE
  9. VENTOLIN [Concomitant]
     Active Substance: ALBUTEROL SULFATE
  10. VITAMIN D2 [Concomitant]
     Active Substance: ERGOCALCIFEROL
  11. SINGULAIR [Concomitant]
     Active Substance: MONTELUKAST SODIUM
     Route: 048

REACTIONS (17)
  - Nasopharyngitis [Unknown]
  - Loss of consciousness [Unknown]
  - Chest discomfort [Unknown]
  - Clonic convulsion [Unknown]
  - Seizure [Unknown]
  - Juvenile myoclonic epilepsy [Unknown]
  - Sleep apnoea syndrome [Unknown]
  - Dyspnoea [Unknown]
  - Obesity [Unknown]
  - Paranasal sinus discomfort [Unknown]
  - Syncope [Unknown]
  - Productive cough [Unknown]
  - Cough [Unknown]
  - Facial pain [Unknown]
  - Rhinorrhoea [Unknown]
  - Epistaxis [Unknown]
  - Atelectasis [Unknown]
